FAERS Safety Report 23790873 (Version 1)
Quarter: 2024Q2

REPORT INFORMATION
  Report Type: Spontaneous
  Country: US (occurrence: US)
  Receive Date: 20240427
  Receipt Date: 20240427
  Transmission Date: 20240716
  Serious: Yes (Hospitalization)
  Sender: FDA-Public Use
  Company Number: US-NOVITIUMPHARMA-2024USNVP00624

PATIENT
  Age: 54 Year
  Sex: Female

DRUGS (12)
  1. LACOSAMIDE [Suspect]
     Active Substance: LACOSAMIDE
     Indication: Seizure
  2. PHENYTOIN [Concomitant]
     Active Substance: PHENYTOIN
     Indication: Seizure
  3. LEVETIRACETAM [Concomitant]
     Active Substance: LEVETIRACETAM
     Indication: Seizure
  4. LEVETIRACETAM [Concomitant]
     Active Substance: LEVETIRACETAM
  5. VALPROIC ACID [Concomitant]
     Active Substance: VALPROIC ACID
     Indication: Seizure
  6. CLOBAZAM [Concomitant]
     Active Substance: CLOBAZAM
     Indication: Seizure
  7. OXCARBAZEPINE [Concomitant]
     Active Substance: OXCARBAZEPINE
     Indication: Seizure
  8. PERAMPANEL [Concomitant]
     Active Substance: PERAMPANEL
     Indication: Seizure
  9. TOPIRAMATE [Concomitant]
     Active Substance: TOPIRAMATE
     Indication: Seizure
  10. VALPROATE [Concomitant]
     Active Substance: VALPROIC ACID
     Indication: Seizure
  11. LORAZEPAM [Concomitant]
     Active Substance: LORAZEPAM
     Indication: Seizure
  12. MIDAZOLAM [Concomitant]
     Active Substance: MIDAZOLAM
     Indication: Seizure

REACTIONS (1)
  - Drug ineffective [Unknown]
